FAERS Safety Report 19436228 (Version 1)
Quarter: 2021Q2

REPORT INFORMATION
  Report Type: Spontaneous
  Country: FR (occurrence: FR)
  Receive Date: 20210618
  Receipt Date: 20210618
  Transmission Date: 20210717
  Serious: Yes (Death, Other)
  Sender: FDA-Public Use
  Company Number: FR-TEVA-2021-FR-1922781

PATIENT
  Age: 76 Year
  Sex: Female
  Weight: 57 kg

DRUGS (21)
  1. CEFEPIME [Suspect]
     Active Substance: CEFEPIME HYDROCHLORIDE
     Indication: PNEUMONIA PNEUMOCOCCAL
     Dosage: 4 G
     Route: 065
     Dates: end: 20210406
  2. LOVENOX [Suspect]
     Active Substance: ENOXAPARIN SODIUM
     Indication: PRODUCT USED FOR UNKNOWN INDICATION
     Route: 065
  3. CALCIDOSE (FRANCE) [Concomitant]
     Active Substance: CALCIUM CARBONATE
  4. CISATRACURIUM. [Suspect]
     Active Substance: CISATRACURIUM
     Indication: SEDATION
     Dosage: 50 MG
     Route: 065
     Dates: end: 20210406
  5. SUFENTANIL [Suspect]
     Active Substance: SUFENTANIL
     Indication: SEDATION
     Dosage: 50 MCG
     Route: 065
     Dates: end: 20210406
  6. VALACICLOVIR [Suspect]
     Active Substance: VALACYCLOVIR HYDROCHLORIDE
     Indication: ANTIBIOTIC PROPHYLAXIS
     Dosage: 500 MG
     Route: 065
  7. HEPARIN SODIUM. [Suspect]
     Active Substance: HEPARIN SODIUM
     Indication: PROPHYLAXIS
     Dosage: 25000 IU
     Route: 065
     Dates: end: 20210415
  8. MEROPENEM. [Suspect]
     Active Substance: MEROPENEM
     Indication: PRODUCT USED FOR UNKNOWN INDICATION
     Route: 065
  9. MIDAZOLAM. [Suspect]
     Active Substance: MIDAZOLAM
     Indication: SEDATION
     Dosage: 50 MG
     Route: 065
  10. LASILIX [Suspect]
     Active Substance: FUROSEMIDE
     Indication: ACUTE PULMONARY OEDEMA
     Dosage: 500 MG
     Route: 065
     Dates: end: 20210407
  11. CORTANCYL [Concomitant]
     Active Substance: PREDNISONE
  12. BACTRIM [Suspect]
     Active Substance: SULFAMETHOXAZOLE\TRIMETHOPRIM
     Indication: ANTIBIOTIC PROPHYLAXIS
     Dosage: 1 DF
     Route: 065
  13. DEXAMETHASONE. [Suspect]
     Active Substance: DEXAMETHASONE
     Indication: COVID-19
     Dosage: 6 MG
     Route: 065
     Dates: end: 20210406
  14. ISOPTINE [Concomitant]
     Active Substance: VERAPAMIL HYDROCHLORIDE
  15. CRESTOR [Concomitant]
     Active Substance: ROSUVASTATIN CALCIUM
  16. VORICONAZOLE. [Suspect]
     Active Substance: VORICONAZOLE
     Indication: LUNG DISORDER
     Dosage: 400 MG
     Route: 065
     Dates: end: 20210406
  17. ZAVICEFTA [Suspect]
     Active Substance: AVIBACTAM SODIUM\CEFTAZIDIME
     Indication: LUNG DISORDER
     Dosage: 4 G
     Route: 065
     Dates: end: 20210411
  18. EUPRESSYL [Suspect]
     Active Substance: URAPIDIL
     Indication: HYPERTENSION
     Dosage: 250 MG
     Route: 065
     Dates: end: 20210415
  19. PANTOPRAZOLE [Concomitant]
     Active Substance: PANTOPRAZOLE
  20. KARDEGIC [Concomitant]
     Active Substance: ASPIRIN DL-LYSINE
  21. HYPERIUM [Concomitant]
     Active Substance: RILMENIDINE PHOSPHATE

REACTIONS (4)
  - Myoclonus [Unknown]
  - Mixed liver injury [Unknown]
  - Toxic encephalopathy [Unknown]
  - Multiple organ dysfunction syndrome [Unknown]

NARRATIVE: CASE EVENT DATE: 20210406
